FAERS Safety Report 6210072-X (Version None)
Quarter: 2009Q2

REPORT INFORMATION
  Report Type: 
  Country: None (occurrence: None)
  Receive Date: 20090527
  Receipt Date: 20090520
  Transmission Date: 20091009
  Serious: Yes (Hospitalization)
  Sender: FDA-Public Use
  Company Number: 09GB001457

PATIENT
  Age: 13 Year
  Sex: Female
  Weight: 38.2 kg

DRUGS (1)
  1. IBUPROFEN [Suspect]
     Indication: PAIN
     Dosage: 400 MG, BID, ORAL
     Route: 048
     Dates: start: 20090325, end: 20090325

REACTIONS (6)
  - ABDOMINAL PAIN [None]
  - BLOOD CREATINE INCREASED [None]
  - LETHARGY [None]
  - NAUSEA [None]
  - RENAL FAILURE ACUTE [None]
  - VOMITING [None]
